FAERS Safety Report 9635664 (Version 1)
Quarter: 2013Q4

REPORT INFORMATION
  Report Type: Spontaneous
  Country: US (occurrence: US)
  Receive Date: 20131021
  Receipt Date: 20131021
  Transmission Date: 20140711
  Serious: Yes (Other)
  Sender: FDA-Public Use
  Company Number: US-GLAXOSMITHKLINE-A1039681A

PATIENT
  Age: 73 Year
  Sex: Female

DRUGS (8)
  1. SORIATANE [Suspect]
     Indication: PSORIASIS
     Dosage: 25MG PER DAY
     Route: 048
     Dates: start: 20130705
  2. LOSARTAN [Concomitant]
  3. PRAVASTATIN [Concomitant]
  4. METFORMIN [Concomitant]
  5. VITAMIN D [Concomitant]
  6. DOXEPIN [Concomitant]
  7. MAGNESIUM [Concomitant]
  8. CHEMOTHERAPEUTICS NOS [Concomitant]
     Indication: OVARIAN CANCER

REACTIONS (14)
  - Loss of consciousness [Not Recovered/Not Resolved]
  - Dizziness [Unknown]
  - Fall [Unknown]
  - Rhinorrhoea [Unknown]
  - Lip exfoliation [Unknown]
  - Alopecia [Unknown]
  - Madarosis [Unknown]
  - Visual impairment [Unknown]
  - Vulvovaginal mycotic infection [Unknown]
  - Onychomadesis [Unknown]
  - Vaginal odour [Unknown]
  - Impaired driving ability [Unknown]
  - Therapeutic response delayed [Unknown]
  - Skin exfoliation [Unknown]
